FAERS Safety Report 17409577 (Version 1)
Quarter: 2020Q1

REPORT INFORMATION
  Report Type: Spontaneous
  Country: CA (occurrence: CA)
  Receive Date: 20200212
  Receipt Date: 20200212
  Transmission Date: 20200409
  Serious: Yes (Hospitalization)
  Sender: FDA-Public Use
  Company Number: CA-TEVA-2020-CA-1183169

PATIENT
  Sex: Male
  Weight: 92 kg

DRUGS (4)
  1. ONDANSETRON [Concomitant]
     Active Substance: ONDANSETRON
  2. OXALIPLATIN INJECTION SINGLE USE VIAL [Suspect]
     Active Substance: OXALIPLATIN
     Indication: PALLIATIVE CARE
     Route: 051
  3. OXALIPLATIN INJECTION SINGLE USE VIAL [Suspect]
     Active Substance: OXALIPLATIN
     Indication: CHEMOTHERAPY
  4. DEXAMETHASONE. [Concomitant]
     Active Substance: DEXAMETHASONE

REACTIONS (2)
  - Chills [Unknown]
  - Feeling cold [Unknown]
